FAERS Safety Report 21716506 (Version 2)
Quarter: 2023Q1

REPORT INFORMATION
  Report Type: Spontaneous
  Country: US (occurrence: US)
  Receive Date: 20221212
  Receipt Date: 20230228
  Transmission Date: 20230418
  Serious: Yes (Hospitalization, Other)
  Sender: FDA-Public Use
  Company Number: US-ENZYVANT THERAPEUTICS, INC.-US2022ENZ00010

PATIENT

DRUGS (10)
  1. RETHYMIC [Suspect]
     Active Substance: ALLOGENIC THYMOCYTE-DEPLETED THYMUS TISSUE-AGDC
     Indication: DiGeorge^s syndrome
     Dosage: 20 SLICES (9277.96 MM2/M2)
     Dates: start: 20220712
  2. LAPINE T-LYMPHOCYTE IMMUNE GLOBULIN [Concomitant]
     Active Substance: LAPINE T-LYMPHOCYTE IMMUNE GLOBULIN
     Indication: Product used for unknown indication
     Dosage: 14 MILLIGRAM, QD
     Route: 042
     Dates: start: 20220707, end: 20220710
  3. METHYLPREDNISOLONE [Concomitant]
     Active Substance: METHYLPREDNISOLONE
     Indication: Product used for unknown indication
     Dosage: 13.92 MILLIGRAM, SINGLE
     Route: 042
     Dates: start: 20220707, end: 20220707
  4. METHYLPREDNISOLONE [Concomitant]
     Active Substance: METHYLPREDNISOLONE
     Dosage: 3.472 MILLIGRAM, EVERY 6 HOURS
     Route: 042
     Dates: start: 20220707, end: 20220710
  5. FLUCONAZOLE [Concomitant]
     Active Substance: FLUCONAZOLE
     Indication: Prophylaxis
     Dosage: UNK
     Route: 065
  6. AZITHROMYCIN [Concomitant]
     Active Substance: AZITHROMYCIN
     Indication: Prophylaxis
     Dosage: UNK
     Route: 065
  7. BACTRIM [Concomitant]
     Active Substance: SULFAMETHOXAZOLE\TRIMETHOPRIM
     Indication: Prophylaxis
     Dosage: UNK
     Route: 065
  8. VALACYCLOVIR [Concomitant]
     Active Substance: VALACYCLOVIR HYDROCHLORIDE
     Indication: Prophylaxis
     Dosage: UNK
     Route: 065
  9. CYCLOSPORINE [Concomitant]
     Active Substance: CYCLOSPORINE
     Indication: Product used for unknown indication
     Dosage: UNK, BID
     Route: 065
     Dates: start: 20220701
  10. MAGNESIUM [Concomitant]
     Active Substance: MAGNESIUM
     Indication: Product used for unknown indication
     Dosage: UNK
     Route: 065

REACTIONS (4)
  - Serratia sepsis [Recovered/Resolved]
  - Adenovirus test positive [Recovered/Resolved]
  - Adenovirus test positive [Recovered/Resolved]
  - Cytomegalovirus infection [Recovered/Resolved]

NARRATIVE: CASE EVENT DATE: 20220730
